FAERS Safety Report 4273084-1 (Version None)
Quarter: 2004Q1

REPORT INFORMATION
  Report Type: 
  Country: None (occurrence: None)
  Receive Date: 20040116
  Receipt Date: 20040107
  Transmission Date: 20041129
  Serious: Yes (Hospitalization)
  Sender: FDA-Public Use
  Company Number: US-BRISTOL-MYERS SQUIBB COMPANY-12471975

PATIENT
  Age: 68 Year
  Sex: Female
  Weight: 63 kg

DRUGS (10)
  1. TAXOL [Suspect]
     Indication: MALIGNANT PALATE NEOPLASM
     Route: 042
     Dates: start: 20031113, end: 20031218
  2. CARBOPLATIN [Suspect]
     Indication: MALIGNANT PALATE NEOPLASM
     Route: 042
     Dates: start: 20031113, end: 20031218
  3. RADIOTHERAPY [Concomitant]
     Indication: MALIGNANT PALATE NEOPLASM
     Dates: start: 20031113
  4. LISINOPRIL [Concomitant]
     Route: 048
  5. ATENOLOL [Concomitant]
     Route: 048
  6. PREVACID [Concomitant]
     Route: 048
  7. LEVOXYL [Concomitant]
  8. LESCOL [Concomitant]
     Route: 048
  9. FENTANYL [Concomitant]
     Route: 003
  10. ROXANOL [Concomitant]

REACTIONS (4)
  - DEHYDRATION [None]
  - DERMATITIS BULLOUS [None]
  - MUCOSAL INFLAMMATION [None]
  - SKIN DESQUAMATION [None]
